FAERS Safety Report 6360487-4 (Version None)
Quarter: 2009Q3

REPORT INFORMATION
  Report Type: 
  Country: None (occurrence: None)
  Receive Date: 20090917
  Receipt Date: 20090902
  Transmission Date: 20100115
  Serious: Yes (Hospitalization)
  Sender: FDA-Public Use
  Company Number: JP-PFIZER INC-2009246504

PATIENT
  Age: 69 Year

DRUGS (8)
  1. MIGLITOL [Suspect]
     Indication: TYPE 2 DIABETES MELLITUS
     Dosage: UNK MG, UNK
     Route: 048
     Dates: start: 20081213, end: 20090721
  2. MIGLITOL [Suspect]
     Dosage: 75 MG, UNK
     Route: 048
     Dates: start: 20081213, end: 20090721
  3. WARFARIN [Concomitant]
     Indication: CEREBROVASCULAR ACCIDENT PROPHYLAXIS
     Dosage: DOSE: 2MG
     Route: 048
     Dates: start: 20080212
  4. PLETAL [Concomitant]
     Indication: CEREBROVASCULAR ACCIDENT PROPHYLAXIS
     Dosage: DOSE: 200MG
     Route: 048
     Dates: start: 20080304
  5. TAKEPRON [Concomitant]
     Indication: PROPHYLAXIS AGAINST GASTROINTESTINAL ULCER
     Dosage: DOSE: 15MG
     Route: 048
     Dates: start: 20080212
  6. NU LOTAN [Concomitant]
     Indication: HYPERTENSION
     Dosage: DOSE: 50MG
     Route: 048
     Dates: start: 20010101
  7. NORVASC [Concomitant]
     Indication: HYPERTENSION
     Dosage: DOSE: 5MG
     Route: 048
     Dates: start: 20010101
  8. ALLELOCK [Concomitant]
     Indication: RHINITIS ALLERGIC
     Dosage: DOSE: 10MG
     Route: 048
     Dates: start: 20090307, end: 20090814

REACTIONS (1)
  - PNEUMATOSIS INTESTINALIS [None]
